FAERS Safety Report 9373993 (Version 1)
Quarter: 2013Q2

REPORT INFORMATION
  Report Type: Spontaneous
  Country: US (occurrence: None)
  Receive Date: 20130627
  Receipt Date: 20130627
  Transmission Date: 20140414
  Serious: No
  Sender: FDA-Public Use
  Company Number: None

PATIENT
  Age: 43 Year
  Sex: Female
  Weight: 75.3 kg

DRUGS (1)
  1. LAMOTRIGENE [Suspect]
     Indication: BIPOLAR DISORDER
     Dosage: PO ORAL
     Route: 048
     Dates: start: 20100831, end: 20130605

REACTIONS (1)
  - Drug ineffective [None]
